FAERS Safety Report 4386450-0 (Version None)
Quarter: 2004Q2

REPORT INFORMATION
  Report Type: 
  Country: None (occurrence: None)
  Receive Date: 20040623
  Receipt Date: 20040615
  Transmission Date: 20050107
  Serious: Yes (Other)
  Sender: FDA-Public Use
  Company Number: 200412620BCC

PATIENT
  Age: 69 Year
  Sex: Female
  Weight: 72.5755 kg

DRUGS (3)
  1. ASPIRIN [Suspect]
     Indication: ARTHRITIS
     Dosage: 650 - 1300 MG, QD, ORAL
     Route: 048
     Dates: end: 20040510
  2. VALIUM [Concomitant]
  3. ANTACID ^WALGREENS^ [Concomitant]

REACTIONS (8)
  - DIFFICULTY IN WALKING [None]
  - DYSGEUSIA [None]
  - FALL [None]
  - GAIT DISTURBANCE [None]
  - HIP FRACTURE [None]
  - HYPOAESTHESIA [None]
  - PARALYSIS [None]
  - TONGUE BLISTERING [None]
